FAERS Safety Report 5871337-4 (Version None)
Quarter: 2008Q3

REPORT INFORMATION
  Report Type: 
  Country: None (occurrence: None)
  Receive Date: 20080905
  Receipt Date: 20080825
  Transmission Date: 20090109
  Serious: Yes (Hospitalization)
  Sender: FDA-Public Use
  Company Number: JP-AMGEN-US297170

PATIENT
  Sex: Female
  Weight: 46 kg

DRUGS (11)
  1. ENBREL [Suspect]
     Indication: RHEUMATOID ARTHRITIS
     Route: 058
     Dates: start: 20050624
  2. RHEUMATREX [Suspect]
     Indication: RHEUMATOID ARTHRITIS
     Route: 048
     Dates: start: 20030728
  3. BREDININ [Suspect]
     Indication: RHEUMATOID ARTHRITIS
     Route: 048
     Dates: start: 20070109
  4. PREDNISOLONE [Suspect]
     Indication: RHEUMATOID ARTHRITIS
     Route: 048
     Dates: start: 20030728, end: 20061012
  5. PREDNISOLONE [Suspect]
     Route: 048
     Dates: start: 20061013
  6. VOLTAREN [Concomitant]
     Indication: RHEUMATOID ARTHRITIS
     Route: 048
     Dates: start: 20040625
  7. MARZULENE S [Concomitant]
     Route: 048
     Dates: start: 20030728
  8. TAGAMET [Concomitant]
     Route: 048
     Dates: start: 20040625
  9. FOSAMAX [Concomitant]
     Indication: OSTEOPOROSIS
     Route: 048
     Dates: start: 20061013
  10. NORVASC [Concomitant]
     Indication: HYPERTENSION
     Route: 048
     Dates: start: 20080612
  11. FOLIAMIN [Concomitant]
     Route: 048
     Dates: start: 20030804

REACTIONS (2)
  - HIP ARTHROPLASTY [None]
  - VARICELLA [None]
